FAERS Safety Report 7807188-0 (Version None)
Quarter: 2011Q4

REPORT INFORMATION
  Report Type: 
  Country: None (occurrence: None)
  Receive Date: 20111011
  Receipt Date: 20111007
  Transmission Date: 20120403
  Serious: Yes (Other)
  Sender: FDA-Public Use
  Company Number: PHHY2011AR83128

PATIENT
  Sex: Female

DRUGS (3)
  1. DORIXINA [Concomitant]
  2. RASILEZ [Suspect]
     Indication: BLOOD PRESSURE
     Dosage: 1 DF, QD
     Dates: start: 20100801
  3. T4 [Concomitant]

REACTIONS (5)
  - CHILLS [None]
  - FIBROMYALGIA [None]
  - FEELING ABNORMAL [None]
  - MUSCULOSKELETAL STIFFNESS [None]
  - ABASIA [None]
